FAERS Safety Report 14692182 (Version 9)
Quarter: 2018Q3

REPORT INFORMATION
  Report Type: Report from Study
  Country: SK (occurrence: SK)
  Receive Date: 20180329
  Receipt Date: 20180705
  Transmission Date: 20181010
  Serious: Yes (Death, Life-Threatening, Hospitalization)
  Sender: FDA-Public Use
  Company Number: SK-ROCHE-2095067

PATIENT
  Age: 65 Year
  Sex: Male
  Weight: 61 kg

DRUGS (20)
  1. PRENESSA [Concomitant]
     Active Substance: PERINDOPRIL
     Route: 048
  2. FRAXIPARIN [Concomitant]
     Active Substance: NADROPARIN CALCIUM
     Indication: THROMBOSIS
     Route: 058
     Dates: start: 20170810
  3. FRAXIPARIN [Concomitant]
     Active Substance: NADROPARIN CALCIUM
     Route: 058
     Dates: start: 20180319
  4. KETOSTERIL [Concomitant]
     Active Substance: AMINO ACIDS
     Indication: ACUTE KIDNEY INJURY
     Route: 048
     Dates: start: 20180223, end: 20180314
  5. RBC^S [Concomitant]
     Indication: ANAEMIA
     Route: 042
     Dates: start: 20180201, end: 20180201
  6. ENELBIN (SLOVAKIA) [Concomitant]
     Route: 048
     Dates: start: 20180201
  7. ATEZOLIZUMAB. [Suspect]
     Active Substance: ATEZOLIZUMAB
     Indication: MALIGNANT URINARY TRACT NEOPLASM
     Dosage: MOST RECENT DOSE 22/FEB/2018
     Route: 042
     Dates: start: 20180202
  8. DICYNONE [Concomitant]
     Active Substance: ETHAMSYLATE
     Route: 046
     Dates: start: 20180201, end: 20180327
  9. STILNOX [Concomitant]
     Active Substance: ZOLPIDEM TARTRATE
     Route: 048
     Dates: start: 20180308, end: 20180308
  10. NOVALGIN (METAMIZOLE SODIUM) [Concomitant]
     Active Substance: METAMIZOLE SODIUM
     Route: 048
     Dates: start: 20170810
  11. MORFIN INJECTION [Concomitant]
     Route: 058
     Dates: start: 20180201
  12. NOLPAZA [Concomitant]
     Active Substance: PANTOPRAZOLE SODIUM
     Route: 048
     Dates: start: 20180223, end: 20180314
  13. CALCIUM GLUCONICUM [Concomitant]
     Route: 042
     Dates: start: 20180223, end: 20180327
  14. FENTANYL. [Concomitant]
     Active Substance: FENTANYL
     Route: 065
     Dates: start: 20170907
  15. DEGAN [Concomitant]
     Active Substance: METOCLOPRAMIDE HYDROCHLORIDE
     Route: 065
     Dates: start: 20171215
  16. DUPHALAC (SLOVAKIA) [Concomitant]
     Indication: CONSTIPATION
     Route: 048
     Dates: start: 20180201
  17. AMOKSIKLAV [Concomitant]
     Active Substance: AMOXICILLIN\CLAVULANATE POTASSIUM
     Indication: URINARY TRACT INFECTION
     Route: 042
     Dates: start: 20180223, end: 20180327
  18. CIPHIN [Concomitant]
     Active Substance: BENZYL ALCOHOL\CIPROFLOXACIN HYDROCHLORIDE\HYDROCORTISONE
     Route: 042
     Dates: start: 20180223, end: 20180314
  19. HYLAK FORTE [Concomitant]
     Route: 048
     Dates: start: 20180223, end: 20180314
  20. DITHIADEN [Concomitant]
     Active Substance: BISULEPIN
     Route: 042
     Dates: start: 20180309, end: 20180309

REACTIONS (2)
  - Acute myocardial infarction [Not Recovered/Not Resolved]
  - Haematuria [Recovered/Resolved]

NARRATIVE: CASE EVENT DATE: 20180223
